FAERS Safety Report 9193219 (Version 1)
Quarter: 2013Q1

REPORT INFORMATION
  Report Type: Report from Study
  Country: BR (occurrence: BR)
  Receive Date: 20130327
  Receipt Date: 20130327
  Transmission Date: 20140127
  Serious: Yes (Hospitalization)
  Sender: FDA-Public Use
  Company Number: BR-ABBOTT-12P-020-0993538-00

PATIENT
  Age: 52 None
  Sex: Female
  Weight: 70 kg

DRUGS (6)
  1. HUMIRA [Suspect]
     Indication: RHEUMATOID ARTHRITIS
     Dates: start: 20110204, end: 201110
  2. HUMIRA [Suspect]
  3. METHOTREXATE/FOLIC ACID [Concomitant]
     Indication: RHEUMATOID ARTHRITIS
  4. PRELONE [Concomitant]
     Indication: PAIN
  5. METHOTREXATE [Concomitant]
     Indication: PRODUCT USED FOR UNKNOWN INDICATION
  6. FENIL-V [Concomitant]
     Indication: PRODUCT USED FOR UNKNOWN INDICATION

REACTIONS (21)
  - Bronchitis [Recovered/Resolved]
  - Productive cough [Not Recovered/Not Resolved]
  - Listless [Not Recovered/Not Resolved]
  - Gastric disorder [Not Recovered/Not Resolved]
  - Gastritis [Unknown]
  - Injection site induration [Unknown]
  - Immunosuppression [Unknown]
  - Pyelonephritis [Recovered/Resolved]
  - Injection site erythema [Unknown]
  - Injection site pruritus [Unknown]
  - Urinary tract infection [Unknown]
  - Bronchitis [Unknown]
  - Hypersensitivity [Unknown]
  - Blister [Unknown]
  - Pruritus [Unknown]
  - Injection site induration [Unknown]
  - Immunodeficiency [Unknown]
  - Vitamin D deficiency [Unknown]
  - Aspartate aminotransferase abnormal [Unknown]
  - Alanine aminotransferase abnormal [Unknown]
  - Arthritis [Unknown]
